FAERS Safety Report 23149854 (Version 2)
Quarter: 2023Q4

REPORT INFORMATION
  Report Type: Spontaneous
  Country: ES (occurrence: ES)
  Receive Date: 20231106
  Receipt Date: 20231114
  Transmission Date: 20240109
  Serious: Yes (Hospitalization, Other)
  Sender: FDA-Public Use
  Company Number: ES-SAMSUNG BIOEPIS-SB-2023-28086

PATIENT
  Age: 66 Year
  Sex: Male

DRUGS (6)
  1. ADALIMUMAB [Suspect]
     Active Substance: ADALIMUMAB\ISOPROPYL ALCOHOL
     Indication: Cystoid macular oedema
     Dosage: 40 MILLIGRAM,Q2W,(IN EVERY 14 DAYS)
     Route: 058
  2. ADALIMUMAB [Suspect]
     Active Substance: ADALIMUMAB\ISOPROPYL ALCOHOL
     Indication: Chorioretinitis
     Dosage: 80 MILLIGRAM
     Route: 058
  3. OZURDEX [Concomitant]
     Active Substance: DEXAMETHASONE
     Indication: Cystoid macular oedema
     Dosage: 700 MICROGRAM,PRN,(INTRAVITREAL INJECTION)
     Route: 031
  4. OZURDEX [Concomitant]
     Active Substance: DEXAMETHASONE
     Indication: Chorioretinitis
  5. CEFTRIAXONE [Concomitant]
     Active Substance: CEFTRIAXONE\CEFTRIAXONE SODIUM
     Indication: Cystoid macular oedema
     Dosage: UNK
     Route: 065
  6. DOXYCYCLINE [Concomitant]
     Active Substance: DOXYCYCLINE
     Indication: Cystoid macular oedema
     Dosage: UNK
     Route: 048

REACTIONS (6)
  - Ocular lymphoma [Recovered/Resolved]
  - Cataract subcapsular [Unknown]
  - Cataract [Unknown]
  - B-cell lymphoma [Unknown]
  - Drug ineffective for unapproved indication [Unknown]
  - Off label use [Unknown]
